FAERS Safety Report 5967597-1 (Version None)
Quarter: 2008Q4

REPORT INFORMATION
  Report Type: 
  Country: None (occurrence: None)
  Receive Date: 20081126
  Receipt Date: 20081027
  Transmission Date: 20090506
  Serious: Yes (Hospitalization)
  Sender: FDA-Public Use
  Company Number: PHHO2008BE02783

PATIENT
  Sex: Female
  Weight: 64.7 kg

DRUGS (3)
  1. NEORAL [Suspect]
     Indication: RENAL TRANSPLANT
     Dosage: 735 MG, BID
     Route: 048
     Dates: start: 20080108
  2. CERTICAN [Suspect]
     Dosage: 4.75 MG DAILY
     Route: 048
     Dates: start: 20080222
  3. MADIOL [Concomitant]
     Indication: RENAL TRANSPLANT
     Dosage: 8 MG DAILY
     Route: 048
     Dates: start: 20080208

REACTIONS (5)
  - LYMPHOCELE [None]
  - LYMPHOCELE MARSUPIALISATION [None]
  - OEDEMA PERIPHERAL [None]
  - SENSORY DISTURBANCE [None]
  - WEIGHT INCREASED [None]
